FAERS Safety Report 10197152 (Version 1)
Quarter: 2014Q2

REPORT INFORMATION
  Report Type: Spontaneous
  Country: US (occurrence: None)
  Receive Date: 20140523
  Receipt Date: 20140523
  Transmission Date: 20141212
  Serious: Yes (Hospitalization)
  Sender: FDA-Public Use
  Company Number: None

PATIENT
  Age: 26 Year
  Sex: Female
  Weight: 86.18 kg

DRUGS (1)
  1. MIRENA IUD [Suspect]

REACTIONS (8)
  - Headache [None]
  - Back pain [None]
  - Vaginal haemorrhage [None]
  - Abdominal pain [None]
  - Ovarian cyst [None]
  - Nausea [None]
  - Vomiting [None]
  - Medical device complication [None]
